FAERS Safety Report 7571004-5 (Version None)
Quarter: 2011Q2

REPORT INFORMATION
  Report Type: 
  Country: None (occurrence: None)
  Receive Date: 20110622
  Receipt Date: 20110622
  Transmission Date: 20111010
  Serious: No
  Sender: FDA-Public Use
  Company Number: None

PATIENT
  Age: 53 Year
  Sex: Female
  Weight: 73.9363 kg

DRUGS (2)
  1. TRILIPIX [Suspect]
     Indication: BLOOD CHOLESTEROL INCREASED
     Dosage: 1 CAPSULE PER DAY
     Dates: start: 20110505, end: 20110526
  2. LOVAZA [Concomitant]

REACTIONS (2)
  - URTICARIA [None]
  - RASH ERYTHEMATOUS [None]
